FAERS Safety Report 5831312-2 (Version None)
Quarter: 2008Q3

REPORT INFORMATION
  Report Type: 
  Country: None (occurrence: None)
  Receive Date: 20080801
  Receipt Date: 20080725
  Transmission Date: 20090109
  Serious: No
  Sender: FDA-Public Use
  Company Number: US-BOEHRINGER INGELHEIM GMBH, GERMANY-2008-BP-09713BP

PATIENT
  Age: 70 Year
  Sex: Male

DRUGS (4)
  1. SPIRIVA [Suspect]
  2. MELOXICAM [Concomitant]
  3. LISINOPRIL [Concomitant]
  4. ALBUTEROL [Concomitant]
     Route: 055

REACTIONS (1)
  - DRUG INEFFECTIVE [None]
